FAERS Safety Report 4369928-5 (Version None)
Quarter: 2004Q2

REPORT INFORMATION
  Report Type: 
  Country: None (occurrence: None)
  Receive Date: 20040527
  Receipt Date: 20040507
  Transmission Date: 20050107
  Serious: Yes (Hospitalization)
  Sender: FDA-Public Use
  Company Number: DE_040513554

PATIENT
  Age: 73 Year
  Sex: Female
  Weight: 56 kg

DRUGS (7)
  1. HUMULIN 70/30 [Suspect]
     Indication: DIABETES MELLITUS NON-INSULIN-DEPENDENT
     Dosage: 30 IU/2 DAY
     Dates: start: 20020101, end: 20030723
  2. RISEDRONATE SODIUM [Concomitant]
  3. ASPIRIN [Concomitant]
  4. RAMIPRIL [Concomitant]
  5. METFORMIN [Concomitant]
  6. IBUPROFEN [Concomitant]
  7. NITRAZEPAM [Concomitant]

REACTIONS (8)
  - APATHY [None]
  - BLOOD PRESSURE INCREASED [None]
  - DISORIENTATION [None]
  - GASTRIC ULCER [None]
  - GASTRITIS [None]
  - HEART RATE INCREASED [None]
  - HELICOBACTER INFECTION [None]
  - HYPOGLYCAEMIA [None]
